FAERS Safety Report 9790690 (Version 2)
Quarter: 2015Q1

REPORT INFORMATION
  Report Type: Spontaneous
  Country: GB (occurrence: GB)
  Receive Date: 20131231
  Receipt Date: 20150115
  Transmission Date: 20150721
  Serious: Yes (Hospitalization, Other)
  Sender: FDA-Public Use
  Company Number: GB-GLAXOSMITHKLINE-B0955511A

PATIENT
  Age: 42 Year
  Sex: Female

DRUGS (3)
  1. KEPPRA [Concomitant]
     Active Substance: LEVETIRACETAM
     Dosage: 1750 MG, UNK
     Route: 042
     Dates: start: 201212
  2. LAMICTAL [Suspect]
     Active Substance: LAMOTRIGINE
     Indication: GENERALISED TONIC-CLONIC SEIZURE
     Route: 048
  3. TEGRETOL [Interacting]
     Active Substance: CARBAMAZEPINE
     Dosage: 800 UNK, UNK
     Dates: start: 201212

REACTIONS (2)
  - Tonic convulsion [Recovering/Resolving]
  - Loss of consciousness [Recovered/Resolved]

NARRATIVE: CASE EVENT DATE: 20140102
